FAERS Safety Report 17866171 (Version 1)
Quarter: 2020Q2

REPORT INFORMATION
  Report Type: Spontaneous
  Country: JP (occurrence: JP)
  Receive Date: 20200605
  Receipt Date: 20200605
  Transmission Date: 20200714
  Serious: Yes (Other)
  Sender: FDA-Public Use
  Company Number: JP-PFIZER INC-2020215555

PATIENT
  Sex: Male

DRUGS (1)
  1. CORTRIL [Suspect]
     Active Substance: HYDROCORTISONE
     Dosage: 1 DF, DAILY(IN THE MORNING)
     Route: 048

REACTIONS (5)
  - Diabetes mellitus [Unknown]
  - Renal impairment [Unknown]
  - Osteoporosis [Unknown]
  - Hypertension [Unknown]
  - Cataract [Unknown]
